FAERS Safety Report 8220008-8 (Version None)
Quarter: 2012Q1

REPORT INFORMATION
  Report Type: 
  Country: None (occurrence: None)
  Receive Date: 20120320
  Receipt Date: 20120306
  Transmission Date: 20120608
  Serious: Yes (Other)
  Sender: FDA-Public Use
  Company Number: TR-RANBAXY-2012RR-52843

PATIENT
  Age: 17 Year
  Sex: Male

DRUGS (5)
  1. ATOMOXETINE HYDROCHLORIDE [Interacting]
     Indication: ATTENTION DEFICIT/HYPERACTIVITY DISORDER
     Dosage: 25 MG/DAY
     Route: 065
  2. FLUOXETINE [Suspect]
     Indication: OBSESSIVE-COMPULSIVE DISORDER
     Dosage: 40 MG/DAY
     Route: 065
  3. HALOPERIDOL [Concomitant]
     Indication: PRODUCT USED FOR UNKNOWN INDICATION
     Dosage: 2 MG, UNK
     Route: 065
  4. RISPERIDONE [Concomitant]
     Dosage: 2.5 MG, UNK
     Route: 065
  5. RISPERIDONE [Concomitant]
     Indication: PRODUCT USED FOR UNKNOWN INDICATION
     Dosage: 2 MG, UNK
     Route: 065

REACTIONS (2)
  - CONDITION AGGRAVATED [None]
  - DRUG INTERACTION [None]
